FAERS Safety Report 4470022-3 (Version None)
Quarter: 2004Q3

REPORT INFORMATION
  Report Type: 
  Country: None (occurrence: None)
  Receive Date: 20040920
  Receipt Date: 20040713
  Transmission Date: 20050211
  Serious: No
  Sender: FDA-Public Use
  Company Number: PHEH2004US07551

PATIENT
  Age: 81 Year
  Sex: Female

DRUGS (4)
  1. ZOMETA [Suspect]
     Indication: BREAST CANCER METASTATIC
     Dosage: 4 MG MONTHLY, UNK
     Dates: start: 20020115, end: 20040415
  2. TAXOL [Concomitant]
  3. ADRIAMYCIN PFS [Concomitant]
  4. CYTOXAN [Concomitant]

REACTIONS (1)
  - ORAL PAIN [None]
